FAERS Safety Report 8760672 (Version 2)
Quarter: 2012Q4

REPORT INFORMATION
  Report Type: 
  Country: DE (occurrence: DE)
  Receive Date: 20120830
  Receipt Date: 20120924
  Transmission Date: 20130627
  Serious: Yes (Hospitalization)
  Sender: FDA-Public Use
  Company Number: DE-VERTEX PHARMACEUTICAL INC.-2012-020288

PATIENT

DRUGS (5)
  1. VX-770 [Suspect]
     Indication: CYSTIC FIBROSIS
     Dosage: 150 mg, bid
     Route: 048
     Dates: start: 201205
  2. BUDESONID [Concomitant]
     Indication: BRONCHIAL OBSTRUCTION
     Dosage: 320 UNK, UNK
  3. CALCIUM [Concomitant]
     Dosage: 500 mg, bid
     Route: 048
  4. CATAZYME [Concomitant]
     Indication: PANCREATIC ENZYMES
  5. AZITHROMYCIN [Concomitant]
     Indication: INFLAMMATION
     Dosage: 300 mg, 3x/week
     Route: 048

REACTIONS (1)
  - Encephalitis [Unknown]
